FAERS Safety Report 4760607-9 (Version None)
Quarter: 2005Q3

REPORT INFORMATION
  Report Type: 
  Country: None (occurrence: None)
  Receive Date: 20050826
  Receipt Date: 20050203
  Transmission Date: 20060218
  Serious: Yes (Hospitalization)
  Sender: FDA-Public Use
  Company Number: USA-2005-0018706

PATIENT
  Sex: Female

DRUGS (2)
  1. OXYCONTIN [Suspect]
     Dosage: 20 MG, TID
  2. PERCOCET [Suspect]
     Dosage: 0 MG, SEE TEXT

REACTIONS (2)
  - INADEQUATE ANALGESIA [None]
  - PAIN [None]
